FAERS Safety Report 15552746 (Version 4)
Quarter: 2018Q4

REPORT INFORMATION
  Report Type: Report from Study
  Country: US (occurrence: US)
  Receive Date: 20181025
  Receipt Date: 20181220
  Transmission Date: 20190205
  Serious: Yes (Other)
  Sender: FDA-Public Use
  Company Number: US-ELI_LILLY_AND_COMPANY-US201810006417

PATIENT
  Age: 68 Year
  Sex: Male

DRUGS (8)
  1. HUMULIN R [Suspect]
     Active Substance: INSULIN HUMAN
     Indication: TYPE 2 DIABETES MELLITUS
     Dosage: UNK UNK, PRN
     Route: 058
     Dates: start: 2011
  2. HUMULIN R [Suspect]
     Active Substance: INSULIN HUMAN
     Dosage: 25 IU, DAILY (NIGHT)
     Route: 058
     Dates: start: 201404, end: 201806
  3. HUMULIN R [Suspect]
     Active Substance: INSULIN HUMAN
     Dosage: 15 U, DAILY (NIGHT)
     Route: 058
  4. HUMULIN R [Suspect]
     Active Substance: INSULIN HUMAN
     Dosage: 15 IU, DAILY (NIGHT)
     Route: 058
     Dates: start: 201404, end: 201806
  5. NOVOLIN R [Concomitant]
     Active Substance: INSULIN HUMAN
     Indication: TYPE 2 DIABETES MELLITUS
     Dosage: 1000 MG, BID
     Route: 065
  6. INSULIN, HUMAN [Suspect]
     Active Substance: INSULIN HUMAN
     Indication: PRODUCT USED FOR UNKNOWN INDICATION
     Dosage: UNK UNK, UNKNOWN
     Route: 065
  7. HUMULIN R [Suspect]
     Active Substance: INSULIN HUMAN
     Dosage: 25 U, DAILY (NIGHT)
     Route: 058
  8. METFORMIN [Concomitant]
     Active Substance: METFORMIN HYDROCHLORIDE
     Indication: TYPE 2 DIABETES MELLITUS
     Dosage: 1000 MG, BID

REACTIONS (13)
  - Optic neuropathy [Unknown]
  - Feeling abnormal [Recovered/Resolved]
  - Sleep apnoea syndrome [Not Recovered/Not Resolved]
  - Neuropathy peripheral [Unknown]
  - Wrong technique in product usage process [Unknown]
  - Diabetic retinopathy [Not Recovered/Not Resolved]
  - Weight decreased [Recovered/Resolved]
  - Peripheral vascular disorder [Not Recovered/Not Resolved]
  - Fatigue [Recovered/Resolved]
  - Peripheral coldness [Unknown]
  - Eye haemorrhage [Not Recovered/Not Resolved]
  - Chronic kidney disease [Not Recovered/Not Resolved]
  - Blood glucose increased [Not Recovered/Not Resolved]

NARRATIVE: CASE EVENT DATE: 201510
